FAERS Safety Report 15682475 (Version 2)
Quarter: 2018Q4

REPORT INFORMATION
  Report Type: Report from Study
  Country: None (occurrence: RO)
  Receive Date: 20181203
  Receipt Date: 20181218
  Transmission Date: 20190205
  Serious: Yes (Hospitalization)
  Sender: FDA-Public Use
  Company Number: RO-ABBVIE-18P-135-2573736-00

PATIENT
  Age: 77 Year
  Sex: Male
  Weight: 70 kg

DRUGS (9)
  1. PRESTARIUM [Concomitant]
     Active Substance: PERINDOPRIL
     Indication: HYPERTENSION
     Route: 048
     Dates: start: 200509
  2. NEBILET [Concomitant]
     Active Substance: NEBIVOLOL
     Indication: HYPERTENSION
     Route: 048
     Dates: start: 201008
  3. ACID FOLIC [Concomitant]
     Active Substance: FOLIC ACID
     Indication: ANAEMIA
     Route: 048
     Dates: start: 20170512
  4. TERTENSIF [Concomitant]
     Active Substance: INDAPAMIDE
     Indication: HYPERTENSION
     Route: 048
     Dates: start: 201008
  5. ASPIRIN CARDIO [Concomitant]
     Active Substance: ASPIRIN
     Indication: VASCULAR DISORDER PROPHYLAXIS
     Route: 048
     Dates: start: 200506
  6. NEXIUM [Concomitant]
     Active Substance: ESOMEPRAZOLE MAGNESIUM
     Indication: GASTRITIS PROPHYLAXIS
     Route: 048
     Dates: start: 20170212
  7. DUODOPA [Suspect]
     Active Substance: CARBIDOPA\LEVODOPA
     Dosage: MD: 8 ML, CD: 6.8 ML/H, ED:3 ML 3X/D, 16 H
     Route: 050
     Dates: start: 20170206
  8. FUROSEMID [Concomitant]
     Active Substance: FUROSEMIDE
     Indication: HYPERTENSION
     Route: 048
     Dates: start: 201807, end: 20181128
  9. DUODOPA [Suspect]
     Active Substance: CARBIDOPA\LEVODOPA
     Indication: PARKINSON^S DISEASE
     Dosage: TITRATION: DOSING AT END OF TITRATION: MD: 8 ML, CD: 6.8 ML/H, ED:3 ML 3X/D, 16 H
     Route: 050
     Dates: start: 20170126, end: 20170206

REACTIONS (1)
  - Hyponatraemia [Not Recovered/Not Resolved]

NARRATIVE: CASE EVENT DATE: 20181127
